FAERS Safety Report 18899291 (Version 1)
Quarter: 2021Q1

REPORT INFORMATION
  Report Type: Spontaneous
  Country: CA (occurrence: CA)
  Receive Date: 20210216
  Receipt Date: 20210216
  Transmission Date: 20210420
  Serious: Yes (Other)
  Sender: FDA-Public Use
  Company Number: CA-PURDUE-USA-2021-0212190

PATIENT
  Age: 31 Year
  Sex: Male

DRUGS (16)
  1. OXYCODONE HYDROCHLORIDE. [Suspect]
     Active Substance: OXYCODONE HYDROCHLORIDE
     Indication: TENDONITIS
     Dosage: UNK
     Route: 065
  2. OXYCODONE HYDROCHLORIDE. [Suspect]
     Active Substance: OXYCODONE HYDROCHLORIDE
     Dosage: UNK
     Route: 065
  3. CAFFEINE CITRATE. [Suspect]
     Active Substance: CAFFEINE CITRATE
     Indication: TENDONITIS
     Dosage: UNK
     Route: 065
  4. ACETAMINOPHEN W/CODEINE PHOSPHATE [Suspect]
     Active Substance: ACETAMINOPHEN\CODEINE PHOSPHATE
     Indication: TENDONITIS
     Dosage: UNK
     Route: 065
  5. FENTANYL. [Suspect]
     Active Substance: FENTANYL
     Indication: ROTATOR CUFF SYNDROME
     Dosage: UNK
     Route: 065
  6. MARIJUANA [Suspect]
     Active Substance: CANNABIS SATIVA SUBSP. INDICA TOP
     Indication: PRODUCT USED FOR UNKNOWN INDICATION
     Dosage: UNK
     Route: 065
  7. PERCOCET                           /00446701/ [Suspect]
     Active Substance: ACETAMINOPHEN\OXYCODONE HYDROCHLORIDE\OXYCODONE TEREPHTHALATE
     Indication: ROTATOR CUFF SYNDROME
     Dosage: UNK
     Route: 065
  8. MORPHINE SULFATE. [Suspect]
     Active Substance: MORPHINE SULFATE
     Indication: TENDONITIS
     Dosage: UNK
     Route: 065
  9. FENTANYL. [Suspect]
     Active Substance: FENTANYL
     Indication: TENDONITIS
     Dosage: UNK
     Route: 065
  10. PERCOCET                           /00446701/ [Suspect]
     Active Substance: ACETAMINOPHEN\OXYCODONE HYDROCHLORIDE\OXYCODONE TEREPHTHALATE
     Indication: TENDONITIS
     Dosage: UNK
     Route: 065
  11. MORPHINE SULFATE. [Suspect]
     Active Substance: MORPHINE SULFATE
     Indication: ROTATOR CUFF SYNDROME
     Dosage: UNK
     Route: 065
  12. ACETAMINOPHEN W/CODEINE PHOSPHATE [Suspect]
     Active Substance: ACETAMINOPHEN\CODEINE PHOSPHATE
     Indication: ROTATOR CUFF SYNDROME
  13. ACETAMINOPHEN W/CODEINE PHOSPHATE [Suspect]
     Active Substance: ACETAMINOPHEN\CODEINE PHOSPHATE
     Indication: ROTATOR CUFF SYNDROME
     Dosage: UNK
     Route: 065
  14. ACETAMINOPHEN W/CODEINE PHOSPHATE [Suspect]
     Active Substance: ACETAMINOPHEN\CODEINE PHOSPHATE
     Dosage: UNK
     Route: 065
  15. ACETAMINOPHEN W/CODEINE PHOSPHATE [Suspect]
     Active Substance: ACETAMINOPHEN\CODEINE PHOSPHATE
     Indication: TENDONITIS
     Dosage: UNK
     Route: 065
  16. CAFFEINE CITRATE. [Suspect]
     Active Substance: CAFFEINE CITRATE
     Indication: ROTATOR CUFF SYNDROME
     Dosage: UNK
     Route: 065

REACTIONS (3)
  - Drug abuse [Unknown]
  - Drug dependence [Unknown]
  - Drug diversion [Unknown]
